FAERS Safety Report 9431096 (Version 2)
Quarter: 2013Q3

REPORT INFORMATION
  Report Type: Spontaneous
  Country: US (occurrence: US)
  Receive Date: 20130730
  Receipt Date: 20130906
  Transmission Date: 20140515
  Serious: Yes (Other)
  Sender: FDA-Public Use
  Company Number: US-TEVA-421132USA

PATIENT
  Age: 31 Year
  Sex: Female
  Weight: 62.2 kg

DRUGS (3)
  1. PARAGARD 380A [Suspect]
     Indication: CONTRACEPTION
     Route: 015
     Dates: end: 20130723
  2. PARAGARD 380A [Suspect]
     Route: 015
     Dates: start: 20130729
  3. SYNTHROID [Concomitant]
     Indication: HYPOTHYROIDISM
     Dosage: 112 MICROGRAM DAILY;
     Route: 048

REACTIONS (2)
  - Device dislocation [Recovered/Resolved]
  - Menorrhagia [Recovered/Resolved]
